FAERS Safety Report 6802964-5 (Version None)
Quarter: 2010Q2

REPORT INFORMATION
  Report Type: 
  Country: None (occurrence: None)
  Receive Date: 20100628
  Receipt Date: 20100615
  Transmission Date: 20101027
  Serious: Yes (Other)
  Sender: FDA-Public Use
  Company Number: PHHY2010NL11510

PATIENT
  Sex: Female
  Weight: 77 kg

DRUGS (3)
  1. TRILEPTAL [Suspect]
     Dosage: 300 MG, TID
  2. TRILEPTAL [Suspect]
     Dosage: 3 TIMES A DAY, 600-300-300
     Dates: start: 20040501
  3. FOLIC ACID [Concomitant]
     Dosage: 1DD 5MG
     Dates: start: 20040501

REACTIONS (2)
  - ABORTION SPONTANEOUS [None]
  - DRUG EXPOSURE DURING PREGNANCY [None]
